FAERS Safety Report 24531230 (Version 1)
Quarter: 2024Q4

REPORT INFORMATION
  Report Type: Spontaneous
  Country: JP (occurrence: JP)
  Receive Date: 20241022
  Receipt Date: 20241022
  Transmission Date: 20250114
  Serious: Yes (Other)
  Sender: ALEXION PHARMACEUTICALS
  Company Number: JP-ASTRAZENECA-240108767_010520_P_1

PATIENT
  Age: 4 Decade

DRUGS (16)
  1. FULVESTRANT [Suspect]
     Active Substance: FULVESTRANT
     Indication: Breast cancer recurrent
     Dosage: DOSE UNKNOWN
  2. FULVESTRANT [Suspect]
     Active Substance: FULVESTRANT
     Dosage: DOSE UNKNOWN
  3. FULVESTRANT [Suspect]
     Active Substance: FULVESTRANT
     Dosage: DOSE UNKNOWN
  4. FULVESTRANT [Suspect]
     Active Substance: FULVESTRANT
     Dosage: DOSE UNKNOWN
  5. TRUQAP [Suspect]
     Active Substance: CAPIVASERTIB
     Indication: Breast cancer recurrent
     Dosage: ADMINISTERED FOR 4 CONSECTIVE DAYS, AND THEN WITHDRAWN FOR 3 DAYS
  6. TRUQAP [Suspect]
     Active Substance: CAPIVASERTIB
     Dosage: ADMINISTERED FOR 4 CONSECTIVE DAYS, AND THEN WITHDRAWN FOR 3 DAYS
  7. TRUQAP [Suspect]
     Active Substance: CAPIVASERTIB
     Dosage: ADMINISTERED FOR 4 CONSECTIVE DAYS, AND THEN WITHDRAWN FOR 3 DAYS
  8. TRUQAP [Suspect]
     Active Substance: CAPIVASERTIB
     Dosage: ADMINISTERED FOR 4 CONSECTIVE DAYS, AND THEN WITHDRAWN FOR 3 DAYS
  9. TRUQAP [Suspect]
     Active Substance: CAPIVASERTIB
     Dosage: DOSE UNKNOWN, ADMINISTERED FOR 4 CONSECTIVE DAYS, AND THEN WITHDRAWN FOR 3 DAYS
  10. TRUQAP [Suspect]
     Active Substance: CAPIVASERTIB
     Dosage: DOSE UNKNOWN, ADMINISTERED FOR 4 CONSECTIVE DAYS, AND THEN WITHDRAWN FOR 3 DAYS
  11. TRUQAP [Suspect]
     Active Substance: CAPIVASERTIB
     Dosage: DOSE UNKNOWN, ADMINISTERED FOR 4 CONSECTIVE DAYS, AND THEN WITHDRAWN FOR 3 DAYS
  12. TRUQAP [Suspect]
     Active Substance: CAPIVASERTIB
     Dosage: DOSE UNKNOWN, ADMINISTERED FOR 4 CONSECTIVE DAYS, AND THEN WITHDRAWN FOR 3 DAYS
  13. TRUQAP [Suspect]
     Active Substance: CAPIVASERTIB
     Dosage: UNK
  14. TRUQAP [Suspect]
     Active Substance: CAPIVASERTIB
     Dosage: UNK
  15. TRUQAP [Suspect]
     Active Substance: CAPIVASERTIB
     Dosage: UNK
  16. TRUQAP [Suspect]
     Active Substance: CAPIVASERTIB
     Dosage: UNK

REACTIONS (1)
  - Rash [Recovered/Resolved]
